FAERS Safety Report 15972449 (Version 1)
Quarter: 2019Q1

REPORT INFORMATION
  Report Type: Spontaneous
  Country: US (occurrence: US)
  Receive Date: 20190216
  Receipt Date: 20190216
  Transmission Date: 20190418
  Serious: No
  Sender: FDA-Public Use
  Company Number: PHEH2019US006278

PATIENT
  Sex: Female

DRUGS (1)
  1. EXTAVIA [Suspect]
     Active Substance: INTERFERON BETA-1B
     Indication: PRODUCT USED FOR UNKNOWN INDICATION
     Route: 065

REACTIONS (7)
  - Injection site pain [Unknown]
  - Pain [Unknown]
  - Burning sensation [Unknown]
  - Calcinosis [Unknown]
  - Dyspepsia [Unknown]
  - Pain of skin [Unknown]
  - Injection site mass [Unknown]
